FAERS Safety Report 17472203 (Version 6)
Quarter: 2021Q3

REPORT INFORMATION
  Report Type: Report from Study
  Country: BR (occurrence: BR)
  Receive Date: 20200228
  Receipt Date: 20210730
  Transmission Date: 20211014
  Serious: Yes (Hospitalization)
  Sender: FDA-Public Use
  Company Number: BR-ROCHE-2549703

PATIENT
  Age: 54 Year
  Sex: Female
  Weight: 55.1 kg

DRUGS (56)
  1. LUFTAL [SIMETICONE] [Concomitant]
     Route: 048
     Dates: start: 20200217, end: 20200218
  2. HIDRION [Concomitant]
     Active Substance: FUROSEMIDE\POTASSIUM CHLORIDE
     Dosage: DOSE: 40 MG/ 100 MG
  3. HIDRION [Concomitant]
     Active Substance: FUROSEMIDE\POTASSIUM CHLORIDE
     Route: 048
     Dates: start: 20200211, end: 20200212
  4. METICORTEN [Concomitant]
     Active Substance: PREDNISONE
     Route: 048
     Dates: start: 20200221, end: 20200221
  5. NOVALGINA [Concomitant]
     Active Substance: METAMIZOLE SODIUM
     Route: 042
     Dates: start: 20200227, end: 20200227
  6. OLIG TRAT [Concomitant]
     Dosage: 2 ML (MILLILITER; CM3)
     Route: 042
     Dates: start: 20200212, end: 20200301
  7. PERIDAL [DOMPERIDONE] [Concomitant]
     Route: 048
     Dates: start: 20200219, end: 20200219
  8. PERIDAL [DOMPERIDONE] [Concomitant]
     Route: 048
     Dates: start: 20200220
  9. MAGNESIUM SULFATE. [Concomitant]
     Active Substance: MAGNESIUM SULFATE
     Route: 048
     Dates: start: 20200103, end: 20200103
  10. TIORFAN [Concomitant]
     Active Substance: RACECADOTRIL
     Route: 048
     Dates: start: 20200222, end: 20200223
  11. PREDNISONE. [Concomitant]
     Active Substance: PREDNISONE
     Route: 048
     Dates: start: 20200309, end: 20200316
  12. OMEPRAZOLE. [Concomitant]
     Active Substance: OMEPRAZOLE
     Route: 048
     Dates: start: 20191220
  13. SLOW K [Concomitant]
     Active Substance: POTASSIUM CHLORIDE
     Route: 048
     Dates: start: 20200211, end: 20200212
  14. SLOW K [Concomitant]
     Active Substance: POTASSIUM CHLORIDE
     Route: 048
     Dates: start: 20200303
  15. DRAMIN [Concomitant]
     Active Substance: DIMENHYDRINATE
     Route: 042
     Dates: start: 20200227, end: 20200227
  16. CERNE 12 [Concomitant]
     Active Substance: VITAMINS
     Route: 042
     Dates: start: 20200213, end: 20200218
  17. NYSTATIN. [Concomitant]
     Active Substance: NYSTATIN
     Dates: start: 20200219, end: 20200303
  18. VITAMIN B1 [Concomitant]
     Active Substance: THIAMINE HYDROCHLORIDE
     Route: 042
     Dates: start: 20200212, end: 20200214
  19. INSULIN [Concomitant]
     Active Substance: INSULIN NOS
     Route: 058
     Dates: start: 20200306, end: 20200306
  20. CERNE 12 [Concomitant]
     Active Substance: VITAMINS
     Route: 042
     Dates: start: 20200212, end: 20200212
  21. CLEXANE [Concomitant]
     Active Substance: ENOXAPARIN SODIUM
     Route: 058
     Dates: start: 20200214, end: 20200218
  22. OLIMEL [Concomitant]
     Active Substance: AMINO ACIDS\DEXTROSE\SOYBEAN OIL
     Dosage: 1000 ML (MILLILITER; CM3)
     Route: 042
     Dates: start: 20200304, end: 20200307
  23. VITAMIN B1 [Concomitant]
     Active Substance: THIAMINE HYDROCHLORIDE
     Route: 042
     Dates: start: 20200215, end: 20200218
  24. LUFTAL [SIMETICONE] [Concomitant]
     Route: 048
     Dates: start: 20200211, end: 20200217
  25. FAMOTIDINE. [Concomitant]
     Active Substance: FAMOTIDINE
     Route: 048
     Dates: start: 20200127, end: 20200127
  26. SMOFKABIVEN [Concomitant]
     Active Substance: AMINO ACIDS\DEXTROSE\ELECTROLYTES NOS\SOYBEAN OIL
     Route: 042
     Dates: start: 20200218, end: 20200302
  27. DRAMIN [Concomitant]
     Active Substance: DIMENHYDRINATE
     Route: 042
     Dates: start: 20200218, end: 20200218
  28. CLEXANE [Concomitant]
     Active Substance: ENOXAPARIN SODIUM
     Route: 058
     Dates: start: 20200220, end: 20200308
  29. OLIMEL [Concomitant]
     Active Substance: AMINO ACIDS\DEXTROSE\SOYBEAN OIL
     Dosage: 1000 ML (MILLILITER; CM3
     Route: 042
     Dates: start: 20200211, end: 20200212
  30. LUFTAL [SIMETICONE] [Concomitant]
     Route: 048
     Dates: start: 20191220
  31. INFLIXIMAB [Concomitant]
     Active Substance: INFLIXIMAB
     Route: 042
     Dates: start: 20200221, end: 20200221
  32. BROMOPRIDA [Concomitant]
     Route: 042
     Dates: start: 20200224, end: 20200225
  33. CERNE 12 [Concomitant]
     Active Substance: VITAMINS
     Route: 042
     Dates: start: 20200306, end: 20200307
  34. LOSEC [Concomitant]
     Active Substance: OMEPRAZOLE
     Route: 048
     Dates: start: 20200212, end: 20200227
  35. METICORTEN [Concomitant]
     Active Substance: PREDNISONE
     Route: 048
     Dates: start: 20200211, end: 20200219
  36. OLIMEL [Concomitant]
     Active Substance: AMINO ACIDS\DEXTROSE\SOYBEAN OIL
     Dosage: 1000 ML (MILLILITER; CM3)
     Route: 042
     Dates: start: 20200213, end: 20200217
  37. OLIMEL [Concomitant]
     Active Substance: AMINO ACIDS\DEXTROSE\SOYBEAN OIL
     Dosage: 1000 ML (MILLILITER; CM3)
     Route: 042
     Dates: start: 20200302, end: 20200303
  38. PROBIATOP [Concomitant]
     Route: 048
     Dates: start: 20200216, end: 20200217
  39. TRAMADOL. [Concomitant]
     Active Substance: TRAMADOL
     Route: 042
     Dates: start: 20200216, end: 20200216
  40. DIPYRONE [Concomitant]
     Active Substance: DIPYRONE
     Route: 048
     Dates: start: 20190821
  41. LUFTAL [SIMETICONE] [Concomitant]
     Route: 065
     Dates: start: 20200223, end: 20200309
  42. INFLIXIMAB [Concomitant]
     Active Substance: INFLIXIMAB
     Route: 042
     Dates: start: 20200127, end: 20200127
  43. EMAMA [Concomitant]
     Active Substance: .ALPHA.-TOCOPHEROL ACETATE
     Route: 061
     Dates: start: 20200211, end: 20200309
  44. SCOPOLAMINE BUTYLBROMIDE [Concomitant]
     Active Substance: SCOPOLAMINE
     Route: 042
     Dates: start: 20200215, end: 20200215
  45. NOVALGINA [Concomitant]
     Active Substance: METAMIZOLE SODIUM
     Route: 042
     Dates: start: 20200220, end: 20200220
  46. BENALET [Concomitant]
     Active Substance: AMMONIUM CHLORIDE\DIPHENHYDRAMINE HYDROCHLORIDE\SODIUM CITRATE
     Dosage: 1 U
     Route: 048
     Dates: start: 20200305, end: 20200309
  47. MYLANTA [Concomitant]
     Active Substance: ALUMINUM HYDROXIDE\DIMETHICONE\MAGNESIUM HYDROXIDE
     Route: 048
     Dates: start: 20200306, end: 20200309
  48. ATEZOLIZUMAB. [Suspect]
     Active Substance: ATEZOLIZUMAB
     Indication: RENAL CELL CARCINOMA
     Dosage: DATE OF MOST RECENT DOSE OF BLINDED ATEZOLIZUMAB PRIOR TO ADVERSE EVENT AND SERIOUS ADVERSE ONSET: 1
     Route: 041
     Dates: start: 20181026
  49. DIFENIDRIN [Concomitant]
     Active Substance: DIPHENHYDRAMINE
     Route: 042
     Dates: start: 20200127, end: 20200127
  50. SLOW K [Concomitant]
     Active Substance: POTASSIUM CHLORIDE
     Route: 048
     Dates: start: 20200214, end: 20200218
  51. CERNE 12 [Concomitant]
     Active Substance: VITAMINS
     Route: 042
     Dates: start: 20200219, end: 20200301
  52. DOMPERIDONE [Concomitant]
     Active Substance: DOMPERIDONE
     Route: 048
     Dates: start: 20191220
  53. PERIDAL [DOMPERIDONE] [Concomitant]
     Route: 048
     Dates: start: 20200211, end: 20200218
  54. MAGNESIUM SULFATE. [Concomitant]
     Active Substance: MAGNESIUM SULFATE
     Route: 048
     Dates: start: 20200211, end: 20200212
  55. ERYTHROMYCIN. [Concomitant]
     Active Substance: ERYTHROMYCIN
     Route: 042
     Dates: start: 20200226, end: 20200307
  56. UNIMEDROL [Concomitant]
     Route: 042
     Dates: start: 20200221, end: 20200308

REACTIONS (1)
  - Malnutrition [Recovered/Resolved]

NARRATIVE: CASE EVENT DATE: 20200207
